FAERS Safety Report 5649113-7 (Version None)
Quarter: 2008Q1

REPORT INFORMATION
  Report Type: 
  Country: None (occurrence: None)
  Receive Date: 20080304
  Receipt Date: 20080219
  Transmission Date: 20080703
  Serious: Yes (Hospitalization, Other)
  Sender: FDA-Public Use
  Company Number: US-ELI_LILLY_AND_COMPANY-US200801006018

PATIENT
  Age: 79 Year
  Sex: Female
  Weight: 60.771 kg

DRUGS (12)
  1. FORTEO [Suspect]
     Indication: OSTEOPOROSIS
     Dosage: 20 UG, DAILY (1/D)
     Dates: start: 20071016
  2. PREVACID [Concomitant]
  3. MULTI-VITAMIN [Concomitant]
  4. CALCIUM D [Concomitant]
  5. GLUCOSAMINE [Concomitant]
  6. ASPIRIN [Concomitant]
     Dosage: 81 MG, UNK
  7. HYDROCHLOROTHIAZIDE [Concomitant]
  8. CHONDROITIN [Concomitant]
  9. DICLOFENAC SODIUM [Concomitant]
  10. ZOLPIDEM [Concomitant]
  11. NASACORT [Concomitant]
  12. AMLOPIN [Concomitant]

REACTIONS (2)
  - DIVERTICULUM [None]
  - GASTROINTESTINAL HAEMORRHAGE [None]
